FAERS Safety Report 24951999 (Version 1)
Quarter: 2025Q1

REPORT INFORMATION
  Report Type: Spontaneous
  Country: US (occurrence: US)
  Receive Date: 20250210
  Receipt Date: 20250210
  Transmission Date: 20250409
  Serious: No
  Sender: PFIZER
  Company Number: US-PFIZER INC-202200727357

PATIENT
  Age: 64 Year
  Sex: Female
  Weight: 55.34 kg

DRUGS (2)
  1. XELJANZ XR [Suspect]
     Active Substance: TOFACITINIB CITRATE
     Indication: Rheumatoid arthritis
     Dosage: 11 MG, 1X/DAY
     Route: 048
  2. ARAVA [Concomitant]
     Active Substance: LEFLUNOMIDE
     Indication: Rheumatoid arthritis
     Dosage: 10 MG, 1X/DAY (TAKING FOR MAYBE 6 MONTHS TO YEAR)
     Route: 048

REACTIONS (3)
  - Diverticulum intestinal [Unknown]
  - Intentional product misuse [Unknown]
  - Therapeutic product effect incomplete [Unknown]
